FAERS Safety Report 13439817 (Version 1)
Quarter: 2017Q2

REPORT INFORMATION
  Report Type: Spontaneous
  Country: RU (occurrence: RU)
  Receive Date: 20170413
  Receipt Date: 20170413
  Transmission Date: 20170830
  Serious: Yes (Other)
  Sender: FDA-Public Use
  Company Number: RU-009507513-1704RUS002447

PATIENT
  Sex: Female

DRUGS (1)
  1. IMPLANON [Suspect]
     Active Substance: ETONOGESTREL
     Indication: CONTRACEPTION
     Dosage: UNK
     Route: 059
     Dates: start: 201612, end: 201701

REACTIONS (4)
  - Arrhythmia [Not Recovered/Not Resolved]
  - Night sweats [Not Recovered/Not Resolved]
  - Vertigo [Not Recovered/Not Resolved]
  - Psychotic disorder [Not Recovered/Not Resolved]
